FAERS Safety Report 7025328-0 (Version None)
Quarter: 2010Q4

REPORT INFORMATION
  Report Type: 
  Country: None (occurrence: None)
  Receive Date: 20101001
  Receipt Date: 20100920
  Transmission Date: 20110411
  Serious: Yes (Other)
  Sender: FDA-Public Use
  Company Number: BR-SANOFI-AVENTIS-2010SA056804

PATIENT
  Age: 75 Year
  Sex: Male
  Weight: 88.5 kg

DRUGS (11)
  1. AFLIBERCEPT [Suspect]
     Indication: PROSTATE CANCER METASTATIC
     Route: 042
     Dates: start: 20080619, end: 20080619
  2. AFLIBERCEPT [Suspect]
     Route: 042
     Dates: start: 20090219, end: 20090219
  3. DOCETAXEL [Suspect]
     Indication: PROSTATE CANCER METASTATIC
     Route: 042
     Dates: start: 20080619, end: 20080619
  4. DOCETAXEL [Suspect]
     Route: 042
     Dates: start: 20081030, end: 20081030
  5. PREDNISONE [Suspect]
     Indication: PROSTATE CANCER METASTATIC
     Dates: start: 20080619, end: 20090311
  6. ATENOLOL [Concomitant]
     Dates: start: 20020101
  7. HYDROCHLOROTHIAZIDE [Concomitant]
     Dates: start: 20020101
  8. ENALAPRIL MALEATE [Concomitant]
     Dates: start: 20020101
  9. AMLODIPINE [Concomitant]
     Dates: start: 20020101
  10. GLUCOSAMINE [Concomitant]
  11. OMEPRAZOLE [Concomitant]
     Dates: start: 20080619

REACTIONS (1)
  - DERMATITIS BULLOUS [None]
